FAERS Safety Report 5279420-1 (Version None)
Quarter: 2007Q1

REPORT INFORMATION
  Report Type: 
  Country: None (occurrence: None)
  Receive Date: 20061213
  Receipt Date: 20060619
  Transmission Date: 20070707
  Serious: No
  Sender: FDA-Public Use
  Company Number: 2006UW12986

PATIENT
  Age: 64 Year
  Sex: Female
  Weight: 99.79 kg

DRUGS (4)
  1. SEROQUEL [Suspect]
     Dates: start: 20060201
  2. HYZAAR [Concomitant]
  3. PRILOSEC [Concomitant]
  4. NORVASC [Concomitant]

REACTIONS (3)
  - ATRIAL FIBRILLATION [None]
  - HYPOTENSION [None]
  - WEIGHT DECREASED [None]
